FAERS Safety Report 5428835-7 (Version None)
Quarter: 2007Q3

REPORT INFORMATION
  Report Type: 
  Country: None (occurrence: None)
  Receive Date: 20070829
  Receipt Date: 20061214
  Transmission Date: 20080115
  Serious: No
  Sender: FDA-Public Use
  Company Number: A0631594A

PATIENT
  Age: 46 Year
  Sex: Female

DRUGS (3)
  1. ACYCLOVIR [Suspect]
     Indication: GENITAL HERPES
     Dosage: 400MG TWICE PER DAY
     Route: 048
  2. PREMPRO [Concomitant]
  3. VITAMIN CAP [Concomitant]

REACTIONS (1)
  - EYE PAIN [None]
